FAERS Safety Report 15505803 (Version 2)
Quarter: 2018Q4

REPORT INFORMATION
  Report Type: Spontaneous
  Country: US (occurrence: US)
  Receive Date: 20181016
  Receipt Date: 20181202
  Transmission Date: 20190205
  Serious: No
  Sender: FDA-Public Use
  Company Number: US-JNJFOC-20181001728

PATIENT
  Age: 27 Year
  Sex: Female
  Weight: 61.69 kg

DRUGS (2)
  1. LEXAPRO [Concomitant]
     Active Substance: ESCITALOPRAM OXALATE
     Route: 065
  2. ORTHO TRI CYCLEN LO [Suspect]
     Active Substance: ETHINYL ESTRADIOL\NORGESTIMATE
     Indication: POLYCYSTIC OVARIES
     Route: 048
     Dates: start: 2008

REACTIONS (3)
  - Product use in unapproved indication [Unknown]
  - Product packaging issue [Unknown]
  - Product dose omission [Unknown]

NARRATIVE: CASE EVENT DATE: 2008
